FAERS Safety Report 25139806 (Version 1)
Quarter: 2025Q1

REPORT INFORMATION
  Report Type: Spontaneous
  Country: US (occurrence: US)
  Receive Date: 20250331
  Receipt Date: 20250331
  Transmission Date: 20250408
  Serious: Yes (Other)
  Sender: AMGEN
  Company Number: US-PFIZER INC-202500063219

PATIENT
  Age: 81 Year
  Sex: Female

DRUGS (2)
  1. ENBREL [Suspect]
     Active Substance: ETANERCEPT
     Indication: Rheumatoid arthritis
     Dosage: 50 MG, WEEKLY (INJECT 1 MILLILITER BY EVERY WEEK)
     Route: 058
  2. ENBREL [Suspect]
     Active Substance: ETANERCEPT
     Dosage: 1 DF, MONTHLY (LAST THREE MONTHS)
     Route: 058

REACTIONS (7)
  - Interstitial lung disease [Unknown]
  - Limb discomfort [Unknown]
  - Pain in extremity [Unknown]
  - Synovial rupture [Unknown]
  - Chronic obstructive pulmonary disease [Unknown]
  - Condition aggravated [Unknown]
  - Off label use [Unknown]
